FAERS Safety Report 19274571 (Version 2)
Quarter: 2021Q4

REPORT INFORMATION
  Report Type: Report from Study
  Country: US (occurrence: US)
  Receive Date: 20210519
  Receipt Date: 20211001
  Transmission Date: 20220303
  Serious: Yes (Death, Other)
  Sender: FDA-Public Use
  Company Number: US-ACCORD-109575

PATIENT
  Age: 55 Year
  Sex: Female

DRUGS (1)
  1. CLOZAPINE [Suspect]
     Active Substance: CLOZAPINE
     Indication: Product used for unknown indication
     Route: 048

REACTIONS (3)
  - Neutropenia [Unknown]
  - Death [Fatal]
  - Neutrophilia [Not Recovered/Not Resolved]

NARRATIVE: CASE EVENT DATE: 20190218
